FAERS Safety Report 9828658 (Version 1)
Quarter: 2013Q4

REPORT INFORMATION
  Report Type: Spontaneous
  Country: US (occurrence: None)
  Receive Date: 20131120
  Receipt Date: 20131120
  Transmission Date: 20140711
  Serious: No
  Sender: FDA-Public Use
  Company Number: 1000048473

PATIENT
  Age: 56 Year
  Sex: Female
  Weight: 81 kg

DRUGS (5)
  1. VIIBRYD [Suspect]
     Indication: DEPRESSION
     Route: 048
     Dates: start: 201307, end: 2013
  2. VIIBRYD [Suspect]
     Indication: ANXIETY
     Route: 048
     Dates: start: 201307, end: 2013
  3. VIIBRYD [Suspect]
     Indication: OBSESSIVE-COMPULSIVE DISORDER
     Route: 048
     Dates: start: 201307, end: 2013
  4. HORMONE GEL (NOS) (HORMONE GEL NOS)) (GEL) (HORMONE GEL (NOS)) [Concomitant]
  5. PROMETRIUM (PROGESTERONE) (PROGESTERONE) [Concomitant]

REACTIONS (2)
  - Increased appetite [None]
  - Weight increased [None]
